FAERS Safety Report 10916498 (Version 4)
Quarter: 2015Q2

REPORT INFORMATION
  Report Type: Spontaneous
  Country: US (occurrence: US)
  Receive Date: 20150316
  Receipt Date: 20150501
  Transmission Date: 20150821
  Serious: Yes (Death, Hospitalization, Other)
  Sender: FDA-Public Use
  Company Number: US-ACTELION-A-US2015-113423

PATIENT
  Age: 15 Year
  Sex: Male

DRUGS (21)
  1. LOMOTIL [Concomitant]
     Active Substance: ATROPINE SULFATE\DIPHENOXYLATE HYDROCHLORIDE
  2. CARAFATE [Concomitant]
     Active Substance: SUCRALFATE
  3. OPSUMIT [Suspect]
     Active Substance: MACITENTAN
     Indication: PULMONARY ARTERIAL HYPERTENSION
     Dosage: 10 MG, QD
     Route: 048
     Dates: start: 20141123, end: 20150324
  4. CHLOROTHIAZIDE. [Concomitant]
     Active Substance: CHLOROTHIAZIDE
  5. LACTOBACILLUS [Concomitant]
     Active Substance: LACTOBACILLUS ACIDOPHILUS
  6. REVATIO [Concomitant]
     Active Substance: SILDENAFIL CITRATE
  7. SUCRALFATE. [Concomitant]
     Active Substance: SUCRALFATE
  8. CITALOPRAM [Concomitant]
     Active Substance: CITALOPRAM HYDROBROMIDE
  9. FERROUS SULFATE [Concomitant]
     Active Substance: FERROUS SULFATE\FERROUS SULFATE, DRIED
  10. FAMOTIDINE. [Concomitant]
     Active Substance: FAMOTIDINE
  11. VELETRI [Suspect]
     Active Substance: EPOPROSTENOL
     Indication: PULMONARY ARTERIAL HYPERTENSION
     Dosage: 91 NG/KG, PER MIN
     Route: 042
     Dates: start: 20130605, end: 20150324
  12. BUMEX [Concomitant]
     Active Substance: BUMETANIDE
  13. CLONAZEPAM. [Concomitant]
     Active Substance: CLONAZEPAM
  14. SINGULAIR [Concomitant]
     Active Substance: MONTELUKAST SODIUM
  15. DIGOXIN. [Concomitant]
     Active Substance: DIGOXIN
  16. FUROSEMIDE. [Concomitant]
     Active Substance: FUROSEMIDE
  17. OMEPRAZOLE. [Concomitant]
     Active Substance: OMEPRAZOLE
  18. MILRINONE [Concomitant]
     Active Substance: MILRINONE
  19. POTASSIUM [Concomitant]
     Active Substance: POTASSIUM
  20. SPIRONOLACTONE. [Concomitant]
     Active Substance: SPIRONOLACTONE
  21. ZOFRAN [Concomitant]
     Active Substance: ONDANSETRON HYDROCHLORIDE

REACTIONS (14)
  - Pulmonary arterial hypertension [Fatal]
  - Chest pain [Recovered/Resolved]
  - Septic shock [Recovered/Resolved]
  - Fluid overload [Not Recovered/Not Resolved]
  - Right ventricular failure [Unknown]
  - Blood culture positive [Recovered/Resolved]
  - Device related sepsis [Recovered/Resolved]
  - Pyrexia [Recovered/Resolved]
  - Medical device change [Unknown]
  - Condition aggravated [Unknown]
  - Catheter site infection [Recovered/Resolved]
  - Disease progression [Fatal]
  - Catheter site haemorrhage [Unknown]
  - Staphylococcal infection [Recovered/Resolved]

NARRATIVE: CASE EVENT DATE: 20150203
